FAERS Safety Report 19963634 (Version 1)
Quarter: 2021Q4

REPORT INFORMATION
  Report Type: Spontaneous
  Country: US (occurrence: US)
  Receive Date: 20211013
  Receipt Date: 20211013
  Transmission Date: 20220303
  Serious: Yes (Disabling)
  Sender: FDA-Public Use
  Company Number: None

PATIENT
  Age: 77 Year
  Sex: Female
  Weight: 52.16 kg

DRUGS (2)
  1. LEVOTHYROXINE SODIUM [Suspect]
     Active Substance: LEVOTHYROXINE SODIUM
     Indication: Hypothyroidism
     Dosage: ?          QUANTITY:30 DF DOSAGE FORM;
     Route: 048
     Dates: start: 20210514, end: 20210518
  2. VITAMIN D3 [Concomitant]
     Active Substance: CHOLECALCIFEROL

REACTIONS (5)
  - Chest discomfort [None]
  - Heart rate increased [None]
  - Abdominal discomfort [None]
  - Feeling abnormal [None]
  - Manufacturing issue [None]

NARRATIVE: CASE EVENT DATE: 20210514
